FAERS Safety Report 25215279 (Version 2)
Quarter: 2025Q4

REPORT INFORMATION
  Report Type: Spontaneous
  Country: US (occurrence: None)
  Receive Date: 20250418
  Receipt Date: 20251021
  Transmission Date: 20260118
  Serious: Yes (Hospitalization, Other)
  Sender: UCB
  Company Number: US-UCBSA-2025014957

PATIENT

DRUGS (2)
  1. BIMZELX [Suspect]
     Active Substance: BIMEKIZUMAB-BKZX
     Indication: Psoriatic arthropathy
     Dosage: 160 MILLIGRAM, EV 4 WEEKS, UNDER THE SKIN
  2. BIMZELX [Suspect]
     Active Substance: BIMEKIZUMAB-BKZX
     Dosage: 160 MILLIGRAM, EV 4 WEEKS

REACTIONS (10)
  - Infection [Unknown]
  - Lower respiratory tract infection [Unknown]
  - Neuralgia [Unknown]
  - Sinusitis [Unknown]
  - Dyspepsia [Unknown]
  - Hot flush [Unknown]
  - Hyperhidrosis [Unknown]
  - Cough [Unknown]
  - Fatigue [Unknown]
  - Drug ineffective [Unknown]
